FAERS Safety Report 10073667 (Version 7)
Quarter: 2014Q4

REPORT INFORMATION
  Report Type: Spontaneous
  Country: ZA (occurrence: ZA)
  Receive Date: 20140411
  Receipt Date: 20141124
  Transmission Date: 20150528
  Serious: Yes (Death, Life-Threatening, Hospitalization)
  Sender: FDA-Public Use
  Company Number: ZA-NOVOPROD-406128

PATIENT
  Age: 73 Year
  Sex: Male
  Weight: 82.7 kg

DRUGS (2)
  1. CLEXANE [Concomitant]
     Active Substance: ENOXAPARIN SODIUM
     Dosage: 40 MG, QD
     Route: 058
  2. PROTAPHANE [Suspect]
     Active Substance: INSULIN HUMAN
     Indication: TYPE 2 DIABETES MELLITUS
     Dosage: 20 IU, QD
     Dates: start: 20140203, end: 20140215

REACTIONS (4)
  - Femoral artery occlusion [Recovered/Resolved]
  - Peripheral ischaemia [Not Recovered/Not Resolved]
  - Deep vein thrombosis [Recovered/Resolved]
  - Post procedural pulmonary embolism [Fatal]

NARRATIVE: CASE EVENT DATE: 20140203
